FAERS Safety Report 25800677 (Version 2)
Quarter: 2025Q4

REPORT INFORMATION
  Report Type: Spontaneous
  Country: US (occurrence: US)
  Receive Date: 20250915
  Receipt Date: 20251117
  Transmission Date: 20260118
  Serious: No
  Sender: JOHNSON AND JOHNSON
  Company Number: US-JNJFOC-20250912697

PATIENT
  Age: 62 Year
  Sex: Male
  Weight: 91.6 kg

DRUGS (2)
  1. RILPIVIRINE [Suspect]
     Active Substance: RILPIVIRINE
     Indication: HIV infection
     Dosage: UNK
     Dates: start: 20221212
  2. CABOTEGRAVIR [Suspect]
     Active Substance: CABOTEGRAVIR
     Indication: Product used for unknown indication
     Dosage: UNK
     Route: 065

REACTIONS (5)
  - Injection site pain [Recovering/Resolving]
  - Hypoaesthesia [Recovering/Resolving]
  - Neck pain [Recovering/Resolving]
  - Hyperaesthesia [Recovering/Resolving]
  - Skin reaction [Unknown]

NARRATIVE: CASE EVENT DATE: 20221216
